FAERS Safety Report 4967299-4 (Version None)
Quarter: 2006Q2

REPORT INFORMATION
  Report Type: 
  Country: None (occurrence: None)
  Receive Date: 20060404
  Receipt Date: 20060320
  Transmission Date: 20061013
  Serious: Yes (Other)
  Sender: FDA-Public Use
  Company Number: GXBR2006US00756

PATIENT
  Age: 51 Year
  Sex: Female
  Weight: 65.3 kg

DRUGS (7)
  1. FLUOXETINE [Suspect]
     Indication: BULIMIA NERVOSA
     Dosage: 40 MG, QD, ORAL
     Route: 048
     Dates: start: 20060307, end: 20060317
  2. GABAPENTIN [Concomitant]
  3. KLONOPIN [Concomitant]
  4. TOPAMAX [Concomitant]
  5. LEVOTHYROXINE SODIUM [Concomitant]
  6. SEROQUEL [Concomitant]
  7. ARIMIDEX [Concomitant]

REACTIONS (9)
  - AGITATION [None]
  - ANGER [None]
  - CONDITION AGGRAVATED [None]
  - DISTURBANCE IN ATTENTION [None]
  - DRUG INEFFECTIVE [None]
  - FEELING ABNORMAL [None]
  - IRRITABILITY [None]
  - RESTLESSNESS [None]
  - ROAD TRAFFIC ACCIDENT [None]
